FAERS Safety Report 10384331 (Version 1)
Quarter: 2014Q3

REPORT INFORMATION
  Report Type: Other
  Country: GB (occurrence: GB)
  Receive Date: 20140814
  Receipt Date: 20140814
  Transmission Date: 20150326
  Serious: Yes (Life-Threatening, Disabling, Other)
  Sender: FDA-Public Use
  Company Number: GB-MYLAN-2014M1000421

PATIENT

DRUGS (3)
  1. TIBOLONE [Suspect]
     Active Substance: TIBOLONE
     Indication: MENOPAUSE
     Dosage: INDICATION: INDUCE MENOPAUSE
     Dates: start: 20140620
  2. FLUOXETINE [Concomitant]
     Active Substance: FLUOXETINE\FLUOXETINE HYDROCHLORIDE
     Indication: DEPRESSED MOOD
     Route: 048
  3. OLANZAPINE. [Suspect]
     Active Substance: OLANZAPINE
     Dosage: STARTED APPROXIMATELY THREE WEEKS PRIOR TO REACTION
     Route: 048

REACTIONS (1)
  - Acute hepatic failure [Not Recovered/Not Resolved]
